FAERS Safety Report 5657181-1 (Version None)
Quarter: 2008Q1

REPORT INFORMATION
  Report Type: 
  Country: None (occurrence: None)
  Receive Date: 20080310
  Receipt Date: 20080303
  Transmission Date: 20080703
  Serious: Yes (Death)
  Sender: FDA-Public Use
  Company Number: US-BAYER-200812906NA

PATIENT
  Age: 53 Year
  Sex: Male

DRUGS (2)
  1. DACARBAZINE [Suspect]
     Indication: MALIGNANT MELANOMA
     Dosage: AS USED: 250 DF
     Route: 042
     Dates: start: 20071221, end: 20071221
  2. IPILIMUMAB OR PLACEBO [Suspect]
     Indication: MALIGNANT MELANOMA
     Route: 042
     Dates: start: 20071221, end: 20071221

REACTIONS (1)
  - MALIGNANT MELANOMA [None]
